FAERS Safety Report 9306376 (Version 1)
Quarter: 2013Q1

REPORT INFORMATION
  Report Type: Spontaneous
  Country: US (occurrence: None)
  Receive Date: 20121204
  Receipt Date: 20121204
  Transmission Date: 20140127
  Serious: Yes (Hospitalization)
  Sender: FDA-Public Use
  Company Number: ACO_32667_2012

PATIENT
  Age: 47 Year
  Sex: Female

DRUGS (6)
  1. AMPYRA (DALFAMPRIDINE) TABLET, 10 MG [Suspect]
     Indication: GAIT DISTURBANCE
     Route: 048
     Dates: start: 201012
  2. CELEXA (CITALOPRAM HYDROBROMIDE) [Concomitant]
  3. CYMBALTA (DULOXETINE HYDROCHLORIDE) [Concomitant]
  4. ALBUTEROL (SALBUTAMOL) [Concomitant]
  5. BACLOFEN (BACLOFEN) (BACLOFEN) [Concomitant]
  6. VISTARIL (HYDROXYZINE HYDROCHLORIDE) [Concomitant]

REACTIONS (2)
  - Psychotic disorder [None]
  - Hallucination, auditory [None]
